FAERS Safety Report 4330562-4 (Version None)
Quarter: 2004Q1

REPORT INFORMATION
  Report Type: 
  Country: None (occurrence: None)
  Receive Date: 20040329
  Receipt Date: 20040316
  Transmission Date: 20041129
  Serious: Yes (Hospitalization, Other)
  Sender: FDA-Public Use
  Company Number: HQWYE910817MAR04

PATIENT
  Age: 58 Year
  Sex: Male

DRUGS (4)
  1. PROPRANOLOL HCL [Suspect]
     Indication: HYPERTENSION
     Dosage: 40 MG 1X PER 1 DAY; ORAL
     Route: 048
     Dates: end: 20031130
  2. LERCANIDIPINE (LERCANIDIINE, ) [Suspect]
     Indication: HYPERTENSION
     Dosage: 10 MG 1X PER 1 DAY; ORAL
     Route: 048
     Dates: start: 20031129, end: 20031130
  3. MEDIATENSYL (URAPIDIL, ) [Suspect]
     Indication: HYPERTENSION
     Dosage: 30 MG, 1X PER 1 DAY; ORAL
     Route: 048
     Dates: end: 20031130
  4. MICARDIS [Suspect]
     Dosage: 80 MG 1X PER 1 DAY; ORAL
     Route: 048
     Dates: end: 20031130

REACTIONS (2)
  - CEREBRAL ISCHAEMIA [None]
  - OVERDOSE [None]
